FAERS Safety Report 5847632-1 (Version None)
Quarter: 2008Q3

REPORT INFORMATION
  Report Type: 
  Country: None (occurrence: None)
  Receive Date: 20080815
  Receipt Date: 20080815
  Transmission Date: 20090109
  Serious: Yes (Disabling)
  Sender: FDA-Public Use
  Company Number: None

PATIENT
  Age: 79 Year
  Sex: Male
  Weight: 68.0396 kg

DRUGS (1)
  1. CIPRO [Suspect]
     Indication: URINARY TRACT INFECTION
     Dosage: 1 PILL A DAY FOR 10 DAYS AUTUMN OF 2007
     Dates: start: 20070101

REACTIONS (4)
  - ARTHRALGIA [None]
  - IMMOBILE [None]
  - MOVEMENT DISORDER [None]
  - PAIN IN EXTREMITY [None]
